FAERS Safety Report 9947613 (Version 1)
Quarter: 2014Q1

REPORT INFORMATION
  Report Type: Report from Study
  Country: US (occurrence: US)
  Receive Date: 20140303
  Receipt Date: 20140303
  Transmission Date: 20141002
  Serious: No
  Sender: FDA-Public Use
  Company Number: US-ABBVIE-13P-163-1055941-00

PATIENT
  Age: 66 Year
  Sex: Female

DRUGS (9)
  1. HUMIRA [Suspect]
     Indication: PSORIASIS
  2. AMLODIPINE [Concomitant]
     Indication: BLOOD PRESSURE ABNORMAL
     Route: 048
  3. TOVIAZ [Concomitant]
     Indication: STRESS URINARY INCONTINENCE
     Route: 048
  4. BENICAR [Concomitant]
     Indication: BLOOD PRESSURE ABNORMAL
     Route: 048
  5. LISINOPRIL HCTZ [Concomitant]
     Indication: BLOOD PRESSURE ABNORMAL
     Dosage: 20/12.5MG
     Route: 048
  6. GUANFACINE [Concomitant]
     Indication: BLOOD PRESSURE ABNORMAL
     Route: 048
  7. ATENOLOL [Concomitant]
     Indication: BLOOD PRESSURE ABNORMAL
     Route: 048
  8. WELLBUTRIN XR [Concomitant]
     Indication: EX-TOBACCO USER
     Route: 048
  9. PRAVASTATIN [Concomitant]
     Indication: BLOOD CHOLESTEROL INCREASED
     Dosage: 40 MG DAILY
     Route: 048

REACTIONS (5)
  - Hypovitaminosis [Not Recovered/Not Resolved]
  - Fatigue [Unknown]
  - Nausea [Unknown]
  - Blood potassium decreased [Unknown]
  - Vitamin D decreased [Unknown]
